FAERS Safety Report 7844936-8 (Version None)
Quarter: 2011Q4

REPORT INFORMATION
  Report Type: 
  Country: None (occurrence: None)
  Receive Date: 20111025
  Receipt Date: 20111013
  Transmission Date: 20120403
  Serious: Yes (Hospitalization)
  Sender: FDA-Public Use
  Company Number: US-BAYER-2011-021248

PATIENT
  Age: 22 Year
  Sex: Female
  Weight: 118 kg

DRUGS (8)
  1. AZITHROMYCIN [Concomitant]
  2. DOCUSATE SODIUM [Concomitant]
  3. ALMACONE [Concomitant]
  4. YAZ [Suspect]
     Dosage: UNK
     Route: 048
     Dates: start: 20080901, end: 20081101
  5. TRI LO SPRINTEC [Concomitant]
     Dosage: UNK
     Dates: start: 20090729, end: 20091101
  6. HYDROCODONE BITARTRATE AND ACETAMINOPHEN [Concomitant]
  7. IBUPROFEN [Concomitant]
     Dosage: UNK UNK, PRN
  8. FERROUS SULFATE TAB [Concomitant]

REACTIONS (3)
  - CHOLECYSTITIS INFECTIVE [None]
  - CHOLECYSTITIS ACUTE [None]
  - ABDOMINAL ABSCESS [None]
